FAERS Safety Report 23113998 (Version 1)
Quarter: 2023Q4

REPORT INFORMATION
  Report Type: Report from Study
  Country: US (occurrence: US)
  Receive Date: 20231027
  Receipt Date: 20231027
  Transmission Date: 20240110
  Serious: Yes (Hospitalization, Other)
  Sender: FDA-Public Use
  Company Number: US-ABBVIE-5463185

PATIENT
  Sex: Male

DRUGS (1)
  1. VENCLEXTA [Suspect]
     Active Substance: VENETOCLAX
     Indication: Acute myeloid leukaemia recurrent
     Route: 048
     Dates: start: 20230822, end: 20231013

REACTIONS (4)
  - Appendicectomy [Unknown]
  - Abdominal pain [Unknown]
  - Abscess [Unknown]
  - Abscess [Recovered/Resolved]

NARRATIVE: CASE EVENT DATE: 20230101
